FAERS Safety Report 9047245 (Version 1)
Quarter: 2013Q1

REPORT INFORMATION
  Report Type: Report from Study
  Country: US (occurrence: US)
  Receive Date: 20130131
  Receipt Date: 20130131
  Transmission Date: 20140127
  Serious: No
  Sender: FDA-Public Use
  Company Number: US-ABBOTT-12P-163-0981369-00

PATIENT
  Sex: Male
  Weight: 136.2 kg

DRUGS (6)
  1. HUMIRA [Suspect]
     Indication: RHEUMATOID ARTHRITIS
     Route: 058
     Dates: start: 201111
  2. HUMIRA [Suspect]
     Route: 058
  3. METOPROLOL [Concomitant]
     Indication: VENTRICULAR EXTRASYSTOLES
  4. ASPIRIN [Concomitant]
     Indication: PRODUCT USED FOR UNKNOWN INDICATION
  5. SIMVASTATIN [Concomitant]
     Indication: BLOOD CHOLESTEROL
  6. CELEBREX [Concomitant]
     Indication: BACK PAIN

REACTIONS (2)
  - Drug dose omission [Recovered/Resolved]
  - Nasopharyngitis [Recovered/Resolved]
